FAERS Safety Report 5866448-3 (Version None)
Quarter: 2008Q3

REPORT INFORMATION
  Report Type: 
  Country: None (occurrence: None)
  Receive Date: 20080902
  Receipt Date: 20080827
  Transmission Date: 20090109
  Serious: Yes (Life-Threatening, Hospitalization)
  Sender: FDA-Public Use
  Company Number: US-JNJFOC-20080706294

PATIENT
  Age: 45 Year
  Sex: Male
  Weight: 65 kg

DRUGS (25)
  1. DOXIL [Suspect]
     Dosage: ADMINISTERED DAY 1 (FIFTH CYCLE) 72MG DOSE
     Route: 042
  2. DOXIL [Suspect]
     Indication: LYMPHOMA AIDS RELATED
     Dosage: CYCLE 1
     Route: 042
  3. RITUXIMAB [Suspect]
     Dosage: TOTAL DOSE ADMINISTERED 675MG
     Route: 042
  4. RITUXIMAB [Suspect]
     Indication: LYMPHOMA AIDS RELATED
     Dosage: CYCLE 1
     Route: 042
  5. CYCLOPHOSPHAMIDE [Suspect]
     Dosage: TOTAL DOSE ADMINISTERED 1350MG
     Route: 042
  6. CYCLOPHOSPHAMIDE [Suspect]
     Indication: LYMPHOMA AIDS RELATED
     Dosage: CYCLE 1
     Route: 042
  7. VINCRISTINE [Suspect]
     Route: 042
  8. VINCRISTINE [Suspect]
     Indication: LYMPHOMA AIDS RELATED
     Dosage: CYCLE 1
     Route: 042
  9. PREDNISONE TAB [Suspect]
     Dosage: TOTAL DOSE ADMINISTERED 500MG
     Route: 048
  10. PREDNISONE TAB [Suspect]
     Indication: LYMPHOMA AIDS RELATED
     Dosage: CYCLE 1
     Route: 048
  11. PROCRIT [Concomitant]
     Route: 065
  12. ATIVAN [Concomitant]
     Route: 065
  13. COLACE [Concomitant]
     Route: 065
  14. MARINOL [Concomitant]
     Route: 065
  15. PROMETHAZINE HCL [Concomitant]
     Route: 065
  16. TRAZODONE HCL [Concomitant]
     Route: 065
  17. HYDROMORPHONE HCL [Concomitant]
     Route: 065
  18. ACETAMINOPHEN [Concomitant]
     Route: 065
  19. METRONIDAZOLE [Concomitant]
     Route: 065
  20. REGLAN [Concomitant]
     Route: 065
  21. DAPSONE [Concomitant]
     Route: 065
  22. BUSPAR [Concomitant]
     Route: 065
  23. CIPRO [Concomitant]
     Route: 065
  24. PROTONIX [Concomitant]
     Route: 065
  25. NEULASTA [Concomitant]
     Route: 065

REACTIONS (1)
  - ABDOMINAL ABSCESS [None]
